FAERS Safety Report 11061307 (Version 2)
Quarter: 2015Q2

REPORT INFORMATION
  Report Type: Report from Study
  Country: US (occurrence: US)
  Receive Date: 20150424
  Receipt Date: 20150604
  Transmission Date: 20150821
  Serious: Yes (Hospitalization, Other)
  Sender: FDA-Public Use
  Company Number: US-GILEAD-2015-0142577

PATIENT
  Age: 63 Year
  Sex: Female

DRUGS (23)
  1. ADCIRCA [Concomitant]
     Active Substance: TADALAFIL
     Indication: PULMONARY HYPERTENSION
     Dosage: UNK UNK, QD
     Dates: start: 20141017
  2. ASPIRIN                            /00002701/ [Concomitant]
     Active Substance: ASPIRIN
  3. HUMIRA [Concomitant]
     Active Substance: ADALIMUMAB
  4. DIGOXIN. [Concomitant]
     Active Substance: DIGOXIN
  5. VITAMIN C [Concomitant]
     Active Substance: ASCORBIC ACID
  6. FOLIC ACID. [Concomitant]
     Active Substance: FOLIC ACID
  7. LASIX [Concomitant]
     Active Substance: FUROSEMIDE
  8. FLONASE                            /00908302/ [Concomitant]
  9. XARELTO [Concomitant]
     Active Substance: RIVAROXABAN
  10. ARAVA [Concomitant]
     Active Substance: LEFLUNOMIDE
  11. CALCIUM [Concomitant]
     Active Substance: CALCIUM
  12. FOSAMAX [Concomitant]
     Active Substance: ALENDRONATE SODIUM
  13. POTASSIUM [Concomitant]
     Active Substance: POTASSIUM
  14. DOCUSATE [Concomitant]
     Active Substance: DOCUSATE
  15. PREDNISONE. [Concomitant]
     Active Substance: PREDNISONE
  16. CLARITIN [Concomitant]
     Active Substance: LORATADINE
  17. AZATHIOPRINE. [Concomitant]
     Active Substance: AZATHIOPRINE
  18. AMBRISENTAN [Suspect]
     Active Substance: AMBRISENTAN
     Indication: PULMONARY HYPERTENSION
     Dosage: 10 MG, QD
     Route: 065
     Dates: start: 20111110
  19. MAGNESIUM [Concomitant]
     Active Substance: MAGNESIUM
  20. CARDIZEM [Concomitant]
     Active Substance: DILTIAZEM HYDROCHLORIDE
  21. SENNA [Concomitant]
     Active Substance: SENNA LEAF\SENNOSIDES\SENNOSIDES A AND B
  22. IRON [Concomitant]
     Active Substance: IRON
  23. PRILOSEC [Concomitant]
     Active Substance: OMEPRAZOLE MAGNESIUM

REACTIONS (3)
  - Cardiac pacemaker insertion [Recovered/Resolved]
  - Arrhythmia [Not Recovered/Not Resolved]
  - Atrial fibrillation [Unknown]

NARRATIVE: CASE EVENT DATE: 20150220
